FAERS Safety Report 13532645 (Version 1)
Quarter: 2017Q2

REPORT INFORMATION
  Report Type: Spontaneous
  Country: EG (occurrence: EG)
  Receive Date: 20170510
  Receipt Date: 20170510
  Transmission Date: 20170830
  Serious: Yes (Hospitalization)
  Sender: FDA-Public Use
  Company Number: EG-FRESENIUS KABI-FK201703701

PATIENT

DRUGS (1)
  1. ROPIVACAINE (MANUFACTURER UNKNOWN) [Suspect]
     Active Substance: ROPIVACAINE
     Indication: INFILTRATION ANAESTHESIA
     Route: 065

REACTIONS (1)
  - Peroneal nerve palsy [Recovering/Resolving]
